FAERS Safety Report 5053499-4 (Version None)
Quarter: 2006Q2

REPORT INFORMATION
  Report Type: 
  Country: None (occurrence: None)
  Receive Date: 20060612
  Receipt Date: 20060629
  Transmission Date: 20061013
  Serious: Yes (Other)
  Sender: FDA-Public Use
  Company Number: 2006082270

PATIENT
  Age: 86 Year
  Sex: Female

DRUGS (8)
  1. EXEMESTANE [Suspect]
     Indication: BREAST CANCER
     Dosage: 25 MG (ONCE DAILY), ORAL
     Route: 048
     Dates: start: 20050824
  2. AMITRIPTYLINE (AMITRIPTYLINE) [Concomitant]
  3. ASPIRIN [Concomitant]
  4. BENDROFLUAZIDE (BENDROFLUMETHIAZIDE) [Concomitant]
  5. FENTANYL [Concomitant]
  6. GABAPENTIN [Concomitant]
  7. PERINDOPRIL ERBUMINE [Concomitant]
  8. TEMAZEPAM [Concomitant]

REACTIONS (1)
  - VAGINAL HAEMORRHAGE [None]
